FAERS Safety Report 4796507-8 (Version None)
Quarter: 2005Q4

REPORT INFORMATION
  Report Type: 
  Country: None (occurrence: None)
  Receive Date: 20051011
  Receipt Date: 20040831
  Transmission Date: 20060501
  Serious: Yes (Hospitalization)
  Sender: FDA-Public Use
  Company Number: 2004-BP-07487BP

PATIENT
  Age: 82 Year
  Sex: Female

DRUGS (1)
  1. CATAPRES [Suspect]
     Indication: HYPERTENSION
     Dosage: 0.2 MG (5 MG, 1 PATCH Q WEEK), TD
     Route: 062
     Dates: start: 19980101

REACTIONS (1)
  - BLOOD PRESSURE INADEQUATELY CONTROLLED [None]
